FAERS Safety Report 19195333 (Version 1)
Quarter: 2021Q2

REPORT INFORMATION
  Report Type: Spontaneous
  Country: US (occurrence: US)
  Receive Date: 20210429
  Receipt Date: 20210429
  Transmission Date: 20210717
  Serious: Yes (Hospitalization)
  Sender: FDA-Public Use
  Company Number: None

PATIENT
  Age: 66 Year
  Sex: Female

DRUGS (9)
  1. DOFETILIDE. [Suspect]
     Active Substance: DOFETILIDE
     Indication: ATRIAL FIBRILLATION
     Route: 048
     Dates: start: 20180119
  2. ANASTROZOLE. [Concomitant]
     Active Substance: ANASTROZOLE
  3. DILTIAZEM. [Concomitant]
     Active Substance: DILTIAZEM
  4. XARELTO [Concomitant]
     Active Substance: RIVAROXABAN
  5. ATORVASTATIN [Concomitant]
     Active Substance: ATORVASTATIN
  6. DIAZEPAM. [Concomitant]
     Active Substance: DIAZEPAM
  7. HYDROCO/APAP [Concomitant]
     Active Substance: ACETAMINOPHEN\HYDROCODONE
  8. TAMOXIFEN [Concomitant]
     Active Substance: TAMOXIFEN
  9. NITROFURANTN [Concomitant]
     Active Substance: NITROFURANTOIN

REACTIONS (1)
  - Intentional dose omission [None]
